FAERS Safety Report 8525971-3 (Version None)
Quarter: 2012Q3

REPORT INFORMATION
  Report Type: 
  Country: None (occurrence: None)
  Receive Date: 20120720
  Receipt Date: 20100825
  Transmission Date: 20120928
  Serious: Yes (Other)
  Sender: FDA-Public Use
  Company Number: PHHY2012US044636

PATIENT
  Age: 63 Year
  Sex: Female

DRUGS (3)
  1. GLEEVEC [Suspect]
     Indication: CHRONIC MYELOID LEUKAEMIA
     Dosage: UNK UKN, UNK
  2. NAPROXEN [Suspect]
     Dosage: 220 MG, THRICE WEEKLY
  3. ESTROGEN NOS [Suspect]

REACTIONS (4)
  - BLISTER [None]
  - DERMATITIS [None]
  - SKIN FRAGILITY [None]
  - PSEUDOPORPHYRIA [None]
